FAERS Safety Report 18456369 (Version 1)
Quarter: 2020Q4

REPORT INFORMATION
  Report Type: Spontaneous
  Country: US (occurrence: US)
  Receive Date: 20201103
  Receipt Date: 20201103
  Transmission Date: 20210114
  Serious: No
  Sender: FDA-Public Use
  Company Number: US-TEVA-2020-US-1844412

PATIENT
  Sex: Male

DRUGS (1)
  1. CARTIA XT GENERIC [Suspect]
     Active Substance: DILTIAZEM HYDROCHLORIDE
     Route: 065

REACTIONS (2)
  - Therapeutic product effect incomplete [Unknown]
  - Adverse event [Unknown]

NARRATIVE: CASE EVENT DATE: 2020
